FAERS Safety Report 15515520 (Version 1)
Quarter: 2018Q4

REPORT INFORMATION
  Report Type: Spontaneous
  Country: FR (occurrence: FR)
  Receive Date: 20181017
  Receipt Date: 20181017
  Transmission Date: 20190205
  Serious: Yes (Life-Threatening)
  Sender: FDA-Public Use
  Company Number: FR-TEVA-2018-FR-964880

PATIENT
  Age: 72 Year
  Sex: Male
  Weight: 65 kg

DRUGS (20)
  1. SPORANOX 100 MG, G?LULE [Concomitant]
     Dosage: 100 MILLIGRAM DAILY;
     Route: 048
  2. EMEND [Concomitant]
     Active Substance: APREPITANT
     Dosage: 1 DOSAGE FORMS DAILY;
     Route: 048
     Dates: start: 20180808
  3. IPRATROPIUM (BROMURE D^) [Concomitant]
     Active Substance: IPRATROPIUM
     Dosage: 1.5 MILLIGRAM DAILY;
     Route: 055
  4. ONDANSETRON [Concomitant]
     Active Substance: ONDANSETRON
     Dosage: 16 MILLIGRAM DAILY;
     Route: 042
     Dates: start: 20180808
  5. JANUVIA [Concomitant]
     Active Substance: SITAGLIPTIN PHOSPHATE
     Dosage: 100 MILLIGRAM DAILY;
     Route: 048
  6. MECIR L.P. 0,4 MG, COMPRIM? PELLICUL? ? LIB?RATION PROLONG?E [Concomitant]
     Active Substance: TAMSULOSIN HYDROCHLORIDE
     Dosage: .4 MILLIGRAM DAILY;
     Route: 048
  7. VALSARTAN. [Concomitant]
     Active Substance: VALSARTAN
     Dosage: 80 MILLIGRAM DAILY;
     Route: 048
  8. ATARAX [Concomitant]
     Active Substance: HYDROXYZINE HYDROCHLORIDE
     Dosage: 25 MILLIGRAM DAILY;
     Route: 048
  9. PRIMPERAN [Concomitant]
     Active Substance: METOCLOPRAMIDE HYDROCHLORIDE
     Dosage: 30 MILLIGRAM DAILY;
     Route: 042
     Dates: start: 20180808
  10. LOVENOX [Concomitant]
     Active Substance: ENOXAPARIN SODIUM
     Dosage: 12000 IU (INTERNATIONAL UNIT) DAILY;
     Route: 058
  11. LYRICA 25 MG, G?LULE [Concomitant]
     Dosage: 25 MILLIGRAM DAILY;
     Route: 048
  12. FUROSEMIDE. [Concomitant]
     Active Substance: FUROSEMIDE
     Dosage: 60 MG IN THE MORNING AND 40 MG AT NOON
     Route: 048
  13. ALDACTONE [Concomitant]
     Active Substance: SPIRONOLACTONE
     Dosage: 12.5 MILLIGRAM DAILY;
     Route: 048
  14. BRICANYL [Concomitant]
     Active Substance: TERBUTALINE SULFATE
     Dosage: 20 MILLIGRAM DAILY;
     Route: 055
  15. ETOPOSIDE. [Suspect]
     Active Substance: ETOPOSIDE
     Indication: SMALL CELL LUNG CANCER RECURRENT
     Dosage: 138 MILLIGRAM DAILY; INFUSION OF THE STOPPED J2 BEFORE THE END
     Route: 041
     Dates: start: 20180808, end: 20180809
  16. NOVORAPID [Concomitant]
     Active Substance: INSULIN ASPART
     Dosage: BASED ON PRE-POSTPRANDIAL BLOOD GLUCOSE LEVELS
     Route: 058
  17. DIFFU K, G?LULE [Concomitant]
     Active Substance: POTASSIUM CHLORIDE
     Dosage: 6 DOSAGE FORMS DAILY; DEPENDING ON THE KALI?MIE
     Route: 048
  18. METHYLPREDNISOLONE. [Concomitant]
     Active Substance: METHYLPREDNISOLONE
     Dosage: 60 MILLIGRAM DAILY;
     Route: 042
     Dates: start: 20180808
  19. AMLODIPINE [Concomitant]
     Active Substance: AMLODIPINE BESYLATE
     Dosage: 10 MILLIGRAM DAILY;
     Route: 048
  20. CARBOPLATINE [Suspect]
     Active Substance: CARBOPLATIN
     Indication: SMALL CELL LUNG CANCER RECURRENT
     Route: 041
     Dates: start: 20180808

REACTIONS (1)
  - Tumour lysis syndrome [Recovered/Resolved with Sequelae]

NARRATIVE: CASE EVENT DATE: 20180809
